FAERS Safety Report 14909822 (Version 4)
Quarter: 2018Q3

REPORT INFORMATION
  Report Type: Spontaneous
  Country: AT (occurrence: AT)
  Receive Date: 20180517
  Receipt Date: 20180730
  Transmission Date: 20181010
  Serious: Yes (Other)
  Sender: FDA-Public Use
  Company Number: CH-AMGEN-CHESP2018064664

PATIENT
  Age: 37 Year
  Sex: Female

DRUGS (9)
  1. HERCEPTIN [Concomitant]
     Active Substance: TRASTUZUMAB
     Indication: HER-2 POSITIVE BREAST CANCER
     Dosage: 300 MG, UNK
     Dates: start: 20170914
  2. CHLORHEXIDIN [Concomitant]
     Active Substance: CHLORHEXIDINE
     Indication: TOOTH EXTRACTION
     Dosage: UNK
  3. CHLORHEXIDIN [Concomitant]
     Active Substance: CHLORHEXIDINE
     Indication: EXPOSED BONE IN JAW
  4. EBERELBIN [Concomitant]
     Indication: BREAST CANCER
     Dosage: 40 MG, EVERY 3?4 WEEKS, UNK
     Dates: start: 20170914
  5. OSPAMOX [Concomitant]
     Active Substance: AMOXICILLIN
     Indication: INFECTION
     Dosage: UNK
  6. XGEVA [Suspect]
     Active Substance: DENOSUMAB
     Indication: METASTASES TO BONE
     Dosage: 120 MG, Q4WK
     Route: 058
     Dates: start: 20170916, end: 20180112
  7. VINORELBINE [Concomitant]
     Active Substance: VINORELBINE\VINORELBINE TARTRATE
     Dosage: UNK
  8. PERJETA [Concomitant]
     Active Substance: PERTUZUMAB
     Dosage: UNK, 6 TIMES
     Dates: start: 20170914
  9. OSPAMOX [Concomitant]
     Active Substance: AMOXICILLIN
     Indication: TOOTH EXTRACTION

REACTIONS (12)
  - Throat lesion [Recovered/Resolved]
  - Toothache [Unknown]
  - Musculoskeletal disorder [Unknown]
  - Periodontitis [Unknown]
  - Exposed bone in jaw [Not Recovered/Not Resolved]
  - Mucosal infection [Unknown]
  - Osteomyelitis [Unknown]
  - Mucosal haemorrhage [Unknown]
  - Oedema mucosal [Unknown]
  - Fistula [Not Recovered/Not Resolved]
  - Nasopharyngitis [Recovered/Resolved]
  - Osteonecrosis of jaw [Unknown]

NARRATIVE: CASE EVENT DATE: 201711
